FAERS Safety Report 5957040-0 (Version None)
Quarter: 2008Q4

REPORT INFORMATION
  Report Type: 
  Country: None (occurrence: None)
  Receive Date: 20081118
  Receipt Date: 20081009
  Transmission Date: 20090506
  Serious: No
  Sender: FDA-Public Use
  Company Number: A0751129A

PATIENT
  Age: 63 Year
  Sex: Male

DRUGS (6)
  1. COREG CR [Suspect]
     Indication: ARRHYTHMIA
     Route: 048
     Dates: start: 20080701
  2. NAMENDA [Concomitant]
  3. FOLIC ACID [Concomitant]
  4. SYNTHROID [Concomitant]
  5. ALLOPURINOL [Concomitant]
  6. COUMADIN [Concomitant]

REACTIONS (2)
  - ANORGASMIA [None]
  - EJACULATION FAILURE [None]
